FAERS Safety Report 11115301 (Version 1)
Quarter: 2015Q2

REPORT INFORMATION
  Report Type: Other
  Country: US (occurrence: US)
  Receive Date: 20150515
  Receipt Date: 20150515
  Transmission Date: 20150821
  Serious: Yes (Life-Threatening, Hospitalization)
  Sender: FDA-Public Use
  Company Number: US-ENDO PHARMACEUTICALS INC-2015-000796

PATIENT
  Age: 17 Year
  Sex: Male

DRUGS (1)
  1. AMLODIPINE BESYLATE TABLETS 5MG [Suspect]
     Active Substance: AMLODIPINE BESYLATE
     Indication: PRODUCT USED FOR UNKNOWN INDICATION
     Dosage: 100-125MG
     Route: 065

REACTIONS (3)
  - Overdose [Recovered/Resolved]
  - Shock [Recovered/Resolved]
  - Atrioventricular block complete [Recovered/Resolved]
